FAERS Safety Report 9184262 (Version 1)
Quarter: 2013Q1

REPORT INFORMATION
  Report Type: Report from Study
  Country: US (occurrence: US)
  Receive Date: 20130322
  Receipt Date: 20130322
  Transmission Date: 20140127
  Serious: Yes (Death)
  Sender: FDA-Public Use
  Company Number: US-ROCHE-1205249

PATIENT
  Sex: Female

DRUGS (6)
  1. AVASTIN [Suspect]
     Indication: COLON CANCER
     Route: 065
     Dates: start: 20130220
  2. AVASTIN [Suspect]
     Indication: HEPATIC CANCER
  3. 5-FU [Concomitant]
  4. IRINOTECAN [Concomitant]
  5. FOLINIC ACID [Concomitant]
  6. OXALIPLATIN [Concomitant]

REACTIONS (1)
  - Death [Fatal]
